FAERS Safety Report 4577216-7 (Version None)
Quarter: 2005Q1

REPORT INFORMATION
  Report Type: 
  Country: None (occurrence: None)
  Receive Date: 20050208
  Receipt Date: 20050128
  Transmission Date: 20050727
  Serious: Yes (Death)
  Sender: FDA-Public Use
  Company Number: USA-2005-0018490

PATIENT
  Age: 55 Year
  Sex: Female

DRUGS (7)
  1. OXYCONTIN [Suspect]
     Indication: PAIN
     Dosage: 20 MG, SEE TEXT, ORAL
     Route: 048
  2. BACLOFEN [Concomitant]
  3. LIDODERM PATCH [Concomitant]
  4. LEXAPRO [Concomitant]
  5. RANITIDINE [Concomitant]
  6. ETOLODAC [Concomitant]
  7. AMITRIPTYLINE HCL [Concomitant]

REACTIONS (1)
  - CARDIAC DISORDER [None]
